FAERS Safety Report 23442990 (Version 6)
Quarter: 2024Q3

REPORT INFORMATION
  Report Type: Spontaneous
  Country: AT (occurrence: AT)
  Receive Date: 20240125
  Receipt Date: 20240926
  Transmission Date: 20241017
  Serious: Yes (Hospitalization, Other)
  Sender: AMGEN
  Company Number: AT-AMGEN-AUTNI2022094016

PATIENT
  Age: 37 Year
  Sex: Female

DRUGS (124)
  1. XGEVA [Suspect]
     Active Substance: DENOSUMAB
     Indication: Prophylaxis
     Dosage: 120 MILLIGRAM, QMO
     Route: 058
     Dates: start: 20161201
  2. ARANESP [Suspect]
     Active Substance: DARBEPOETIN ALFA
     Indication: Anaemia prophylaxis
     Dosage: 150 MICROGRAM, QWK
     Route: 058
     Dates: start: 20161201, end: 201701
  3. ARANESP [Suspect]
     Active Substance: DARBEPOETIN ALFA
     Dosage: 150 MICROGRAM, QMO
     Route: 058
     Dates: start: 20161201, end: 201701
  4. TAXOTERE [Suspect]
     Active Substance: DOCETAXEL
     Indication: Breast cancer metastatic
     Dosage: 75 MICROGRAM/SQ. METER, Q3WK
     Route: 042
     Dates: start: 20161020, end: 20161020
  5. TAXOTERE [Suspect]
     Active Substance: DOCETAXEL
     Indication: HER2 positive breast cancer
     Dosage: 75 MICROGRAM/SQ. METER, Q3WK
     Route: 042
     Dates: start: 20161111, end: 20161111
  6. TAXOTERE [Suspect]
     Active Substance: DOCETAXEL
     Dosage: 100 MICROGRAM/SQ. METER, Q3WK
     Route: 042
     Dates: start: 20161201, end: 20170202
  7. HERCEPTIN [Suspect]
     Active Substance: TRASTUZUMAB
     Indication: Breast cancer metastatic
     Dosage: 8 MILLIGRAM/KILOGRAM, Q3WK
     Route: 042
     Dates: start: 20161020, end: 20161020
  8. HERCEPTIN [Suspect]
     Active Substance: TRASTUZUMAB
     Indication: HER2 positive breast cancer
     Dosage: 8 MILLIGRAM/KILOGRAM, Q3WK
     Route: 042
     Dates: start: 20170112, end: 20170112
  9. HERCEPTIN [Suspect]
     Active Substance: TRASTUZUMAB
     Dosage: 6 MILLIGRAM/KILOGRAM, Q3WK
     Route: 042
     Dates: start: 20170202, end: 20180108
  10. HERCEPTIN [Suspect]
     Active Substance: TRASTUZUMAB
     Dosage: 6 MICROGRAM/KILOGRAM, Q3WK
     Route: 042
     Dates: start: 20170227, end: 20180108
  11. HERCEPTIN [Suspect]
     Active Substance: TRASTUZUMAB
     Dosage: 6 MILLIGRAM/KILOGRAM, Q3WK
     Route: 042
     Dates: start: 20190906, end: 20210927
  12. HERCEPTIN [Suspect]
     Active Substance: TRASTUZUMAB
     Dosage: 6 MILLIGRAM/KILOGRAM, Q3WK
     Route: 042
     Dates: start: 20210929, end: 20220930
  13. CYTOXAN [Suspect]
     Active Substance: CYCLOPHOSPHAMIDE
     Indication: Breast cancer metastatic
     Dosage: 500 MILLIGRAM/SQ. METER, QD
     Route: 042
     Dates: start: 20161005, end: 20161005
  14. CYTOXAN [Suspect]
     Active Substance: CYCLOPHOSPHAMIDE
     Indication: HER2 positive breast cancer
  15. PERJETA [Suspect]
     Active Substance: PERTUZUMAB
     Indication: Breast cancer metastatic
     Dosage: 840 MILLIGRAM, Q3WK
     Route: 042
     Dates: start: 20161020, end: 20161020
  16. PERJETA [Suspect]
     Active Substance: PERTUZUMAB
     Indication: HER2 positive breast cancer
     Dosage: 840 MILLIGRAM, Q3WK
     Route: 042
     Dates: start: 20170112, end: 20170112
  17. PERJETA [Suspect]
     Active Substance: PERTUZUMAB
     Dosage: 420 MILLIGRAM, Q3WK
     Route: 042
     Dates: start: 20170202, end: 20180108
  18. PERJETA [Suspect]
     Active Substance: PERTUZUMAB
     Dosage: 420 MILLIGRAM, Q3WK
     Route: 042
     Dates: start: 20170227, end: 20180108
  19. PERJETA [Suspect]
     Active Substance: PERTUZUMAB
     Dosage: 420 MILLIGRAM, Q3WK
     Route: 042
     Dates: start: 20190906, end: 20210409
  20. TUCATINIB [Suspect]
     Active Substance: TUCATINIB
     Indication: Breast cancer metastatic
     Dosage: 300 MILLIGRAM, BID
     Route: 048
     Dates: start: 20210430, end: 20221023
  21. TUCATINIB [Suspect]
     Active Substance: TUCATINIB
     Indication: HER2 positive breast cancer
     Dosage: 300 MILLIGRAM, MULTIPLE 1 DAYS
     Route: 048
     Dates: start: 20210929
  22. TUCATINIB [Suspect]
     Active Substance: TUCATINIB
     Dosage: 300 MILLIGRAM (0.5 DAY)
     Route: 048
     Dates: start: 20210929
  23. KADCYLA [Suspect]
     Active Substance: ADO-TRASTUZUMAB EMTANSINE
     Indication: Breast cancer metastatic
     Dosage: 3.6 MILLIGRAM/KILOGRAM (216 MG), Q3WK
     Route: 042
     Dates: start: 20180205, end: 20190816
  24. KADCYLA [Suspect]
     Active Substance: ADO-TRASTUZUMAB EMTANSINE
     Indication: HER2 positive breast cancer
  25. ELLENCE [Suspect]
     Active Substance: EPIRUBICIN HYDROCHLORIDE
     Indication: Breast cancer metastatic
     Dosage: 100 MILLIGRAM/SQ. METER
     Route: 042
     Dates: start: 20161005, end: 20161005
  26. ELLENCE [Suspect]
     Active Substance: EPIRUBICIN HYDROCHLORIDE
     Indication: HER2 positive breast cancer
  27. XELODA [Suspect]
     Active Substance: CAPECITABINE
     Indication: Breast cancer metastatic
     Dosage: 1500 MILLIGRAM
     Route: 048
     Dates: start: 20210430, end: 20210903
  28. XELODA [Suspect]
     Active Substance: CAPECITABINE
     Indication: HER2 positive breast cancer
     Dosage: 1000 MILLIGRAM
     Route: 048
     Dates: start: 20210904, end: 20210927
  29. XELODA [Suspect]
     Active Substance: CAPECITABINE
     Dosage: 1000 MILLIGRAM
     Route: 048
     Dates: start: 20210929, end: 20220114
  30. XELODA [Suspect]
     Active Substance: CAPECITABINE
     Dosage: 1000 MILLIGRAM/ DAY 1- DAY 14
     Route: 048
     Dates: start: 20220204, end: 20220930
  31. XELODA [Suspect]
     Active Substance: CAPECITABINE
     Dosage: 500 MILLIGRAM
     Route: 048
     Dates: start: 20220930, end: 20221024
  32. XELODA [Suspect]
     Active Substance: CAPECITABINE
     Dosage: 2000 MILLIGRAM, QD (1000 MG, 2/DAY)
     Route: 048
     Dates: start: 20220204, end: 20220930
  33. XELODA [Suspect]
     Active Substance: CAPECITABINE
     Dosage: 2000 MILLIGRAM, QD (1000 MILLIGRAM, 2/DAY)
     Route: 048
     Dates: start: 20210404, end: 20220114
  34. XELODA [Suspect]
     Active Substance: CAPECITABINE
     Dosage: 1000 MILLIGRAM/ DAY 1- DAY 14
     Route: 048
     Dates: start: 20210904, end: 20220114
  35. FAM-TRASTUZUMAB DERUXTECAN-NXKI [Suspect]
     Active Substance: FAM-TRASTUZUMAB DERUXTECAN-NXKI
     Indication: HER2 positive breast cancer
     Dosage: 5.4 MILLIGRAM/KILOGRAM, Q3WK
     Route: 042
     Dates: start: 20220924, end: 20221114
  36. FAM-TRASTUZUMAB DERUXTECAN-NXKI [Suspect]
     Active Substance: FAM-TRASTUZUMAB DERUXTECAN-NXKI
     Dosage: 4.4 MILLIGRAM/KILOGRAM, Q3WK
     Route: 042
     Dates: start: 20221202, end: 20230714
  37. FAM-TRASTUZUMAB DERUXTECAN-NXKI [Suspect]
     Active Substance: FAM-TRASTUZUMAB DERUXTECAN-NXKI
     Dosage: 4.4 MILLIGRAM/KILOGRAM, Q3WK
     Route: 042
     Dates: start: 20230811
  38. LOPERAMIDE [Suspect]
     Active Substance: LOPERAMIDE
     Indication: Diarrhoea
     Dosage: 2 MILLIGRAM
     Route: 048
     Dates: start: 20171106, end: 20171127
  39. LOPERAMIDE [Suspect]
     Active Substance: LOPERAMIDE
     Dosage: 2 MILLIGRAM, AS NECESSARY
     Route: 048
     Dates: start: 20171127
  40. DOCETAXEL [Suspect]
     Active Substance: DOCETAXEL\DOCETAXEL ANHYDROUS
     Indication: Breast cancer metastatic
     Dosage: 75 MILLIGRAM/SQ. METER, Q3WK
     Route: 048
     Dates: start: 20161111, end: 20161111
  41. DOCETAXEL [Suspect]
     Active Substance: DOCETAXEL\DOCETAXEL ANHYDROUS
     Dosage: 100 MILLIGRAM/SQ. METER, Q3WK
     Route: 042
     Dates: start: 20161201, end: 20161222
  42. DOCETAXEL [Suspect]
     Active Substance: DOCETAXEL\DOCETAXEL ANHYDROUS
     Dosage: 100 MILLIGRAM/SQ. METER, Q3WK
     Route: 042
     Dates: start: 20170112, end: 20170202
  43. DOCETAXEL [Suspect]
     Active Substance: DOCETAXEL\DOCETAXEL ANHYDROUS
     Dosage: 75 MILLIGRAM/SQ. METER, Q3WK
     Route: 042
     Dates: start: 20161020, end: 20161020
  44. TUKYSA [Suspect]
     Active Substance: TUCATINIB
     Indication: Breast cancer metastatic
     Dosage: 1200 MILLIGRAM, QD (300 MG, BID)
     Route: 048
     Dates: start: 20210430
  45. TUKYSA [Suspect]
     Active Substance: TUCATINIB
     Indication: HER2 positive breast cancer
     Dosage: 600 MILLIGRAM, QD (300 MG, BID)
     Route: 048
     Dates: start: 20210430, end: 20210927
  46. TUKYSA [Suspect]
     Active Substance: TUCATINIB
     Dosage: 600 MILLIGRAM, QD (300 MG, BID)
     Route: 048
     Dates: start: 20210929, end: 20211023
  47. TUCATINIB [Suspect]
     Active Substance: TUCATINIB
     Indication: HER2 positive breast cancer
     Dosage: 600 MILLIGRAM, QD (300 MG, 2/DAY)
     Route: 065
     Dates: start: 20210929, end: 20221023
  48. TUCATINIB [Suspect]
     Active Substance: TUCATINIB
     Dosage: 600 MILLIGRAM, QD (300 MG)
     Route: 065
     Dates: end: 20210927
  49. TRASTUZUMAB [Suspect]
     Active Substance: TRASTUZUMAB
     Indication: Breast cancer metastatic
     Dosage: 8 MILLIGRAM/KILOGRAM, Q3WK
     Route: 042
     Dates: start: 20161020, end: 20161020
  50. TRASTUZUMAB [Suspect]
     Active Substance: TRASTUZUMAB
     Dosage: 8 MILLIGRAM/KILOGRAM, Q3WK
     Route: 042
     Dates: start: 20170112, end: 20170112
  51. TRASTUZUMAB [Suspect]
     Active Substance: TRASTUZUMAB
     Dosage: 6 MILLIGRAM/KILOGRAM, Q3WK
     Route: 042
     Dates: start: 20170227, end: 20170227
  52. TRASTUZUMAB [Suspect]
     Active Substance: TRASTUZUMAB
     Dosage: 6 MILLIGRAM/KILOGRAM, Q3WK
     Route: 042
     Dates: start: 20190906, end: 20190906
  53. CYCLOPHOSPHAMIDE [Suspect]
     Active Substance: CYCLOPHOSPHAMIDE
     Indication: Breast cancer metastatic
     Dosage: 500 MILLIGRAM/SQ. METER
     Route: 042
     Dates: start: 20161005
  54. ONDANSETRON HYDROCHLORIDE [Concomitant]
     Active Substance: ONDANSETRON HYDROCHLORIDE
     Indication: Nausea
     Dosage: 8 MILLIGRAM (AS NECESSARY)
     Route: 048
     Dates: start: 20181105
  55. CLOBAZAM [Concomitant]
     Active Substance: CLOBAZAM
     Indication: Epilepsy
     Dosage: 5 DOSAGE FORM
     Route: 048
     Dates: start: 20220201
  56. HALDOL [Concomitant]
     Active Substance: HALOPERIDOL
     Indication: Prophylaxis of nausea and vomiting
     Dosage: 4 DROP, BID
     Route: 048
     Dates: start: 201702
  57. SERTRALINE [Concomitant]
     Active Substance: SERTRALINE HYDROCHLORIDE
     Indication: Depression
     Dosage: UNK
     Route: 048
     Dates: start: 20171016
  58. SERTRALINE [Concomitant]
     Active Substance: SERTRALINE HYDROCHLORIDE
     Dosage: UNK
     Route: 048
     Dates: start: 20230714
  59. LOPERAMIDE HYDROCHLORIDE [Concomitant]
     Active Substance: LOPERAMIDE HYDROCHLORIDE
     Indication: Diarrhoea
     Dosage: 2 MILLIGRAM
     Route: 048
     Dates: start: 20171127
  60. SUCRALAN [Concomitant]
     Indication: Prophylaxis
     Dosage: 5 MILLILITER, AS NECESSARY
     Route: 048
     Dates: start: 20161215
  61. TRAZODONE HYDROCHLORIDE [Concomitant]
     Active Substance: TRAZODONE HYDROCHLORIDE
     Dosage: UNK
     Dates: start: 20221129
  62. RAMIPRIL [Concomitant]
     Active Substance: RAMIPRIL
     Indication: Cardiovascular event prophylaxis
     Dosage: 2.5 MILLIGRAM, BID
     Route: 048
     Dates: start: 20161112, end: 20161221
  63. RAMIPRIL [Concomitant]
     Active Substance: RAMIPRIL
     Dosage: UNK, BID
     Route: 048
     Dates: start: 20161222, end: 20170226
  64. RAMIPRIL [Concomitant]
     Active Substance: RAMIPRIL
     Dosage: 15 MILLIGRAM, BID
     Route: 048
     Dates: start: 20170227
  65. FENTANYL [Concomitant]
     Active Substance: FENTANYL\FENTANYL CITRATE
     Indication: Pain prophylaxis
     Dosage: 25 MICROGRAM, TID
     Route: 062
     Dates: start: 201706
  66. LEVETIRACETAM [Concomitant]
     Active Substance: LEVETIRACETAM
     Indication: Epilepsy
     Dosage: 750 MILLIGRAM, BID
     Route: 048
     Dates: start: 20220201
  67. LEVETIRACETAM [Concomitant]
     Active Substance: LEVETIRACETAM
     Indication: Epilepsy
  68. LASIX [Concomitant]
     Active Substance: FUROSEMIDE
     Indication: Prophylaxis
     Dosage: 30 MILLIGRAM, QD
     Route: 048
     Dates: start: 20161114, end: 201611
  69. LASIX [Concomitant]
     Active Substance: FUROSEMIDE
     Dosage: 40 MILLIGRAM, QD
     Route: 040
     Dates: start: 20161112, end: 20161114
  70. KCL [Concomitant]
     Active Substance: POTASSIUM CHLORIDE
     Indication: Prophylaxis
     Dosage: 1200 MILLIGRAM, BID
     Route: 048
     Dates: start: 20161117, end: 201702
  71. DEXIBUPROFEN [Concomitant]
     Active Substance: DEXIBUPROFEN
     Indication: Pain prophylaxis
     Dosage: 400 MILLIGRAM, TID (DATE OF LAST DOSE ADMINISTARTION: 25/NOV/2023)
     Route: 048
     Dates: start: 20210312
  72. AMOXICILLIN\CLAVULANATE POTASSIUM [Concomitant]
     Active Substance: AMOXICILLIN\CLAVULANATE POTASSIUM
     Dosage: 1 GRAM
     Route: 048
     Dates: start: 20161212, end: 20161216
  73. APREPITANT [Concomitant]
     Active Substance: APREPITANT
     Indication: Nausea
     Dosage: UNK
     Dates: start: 20221123
  74. APREPITANT [Concomitant]
     Active Substance: APREPITANT
     Dosage: UNK
     Dates: start: 20221202
  75. BISOPROLOL FUMARATE [Concomitant]
     Active Substance: BISOPROLOL FUMARATE
     Dosage: 1.25 MILLIGRAM, QD
     Route: 048
     Dates: start: 20161117, end: 20170226
  76. DEXAMETHASONE [Concomitant]
     Active Substance: DEXAMETHASONE
     Indication: Headache
     Dosage: 8 MILLIGRAM (0.5)
     Dates: start: 20180117, end: 20180122
  77. DEXAMETHASONE [Concomitant]
     Active Substance: DEXAMETHASONE
     Dosage: 8 MILLIGRAM (0.5 DAY)
     Route: 048
     Dates: start: 20161202, end: 20161203
  78. DEXAMETHASONE [Concomitant]
     Active Substance: DEXAMETHASONE
     Dosage: UNK
     Dates: start: 20221123, end: 20221215
  79. DEXAMETHASONE [Concomitant]
     Active Substance: DEXAMETHASONE
     Dosage: 8 MILLIGRAM, QD
     Route: 048
     Dates: start: 20180817, end: 20180831
  80. ESOMEPRAZOLE [Concomitant]
     Active Substance: ESOMEPRAZOLE
     Dosage: UNK
     Dates: start: 20221123
  81. XARELTO [Concomitant]
     Active Substance: RIVAROXABAN
     Dosage: 10 MILLIGRAM, QD
     Route: 048
     Dates: start: 20161026, end: 201612
  82. MILNACIPRAN [Concomitant]
     Active Substance: MILNACIPRAN
     Dosage: UNK
     Dates: start: 20221123, end: 20230713
  83. HALCION [Concomitant]
     Active Substance: TRIAZOLAM
     Indication: Sleep disorder
     Dosage: UNK
     Route: 048
     Dates: start: 2016, end: 201610
  84. DEXAMETHASONE [Concomitant]
     Active Substance: DEXAMETHASONE
     Indication: Prophylaxis
     Dosage: 8 MILLIGRAM, BID
     Route: 048
     Dates: start: 20180117, end: 20180122
  85. DEXAMETHASONE [Concomitant]
     Active Substance: DEXAMETHASONE
     Dosage: 8 MILLIGRAM, BID
     Route: 048
     Dates: start: 20161202, end: 20161203
  86. LAXAGOL [Concomitant]
     Dosage: UNK
     Dates: start: 20201120
  87. Paspertin [Concomitant]
     Indication: Nausea
     Dosage: 3 AMPULE
     Route: 040
     Dates: start: 20161113
  88. CEOLAT [Concomitant]
     Indication: Prophylaxis of nausea and vomiting
     Dosage: 10 MILLILITER (ASNECESSARY)
     Route: 048
     Dates: start: 20161112, end: 201702
  89. HYDROMORPHONE HYDROCHLORIDE [Concomitant]
     Active Substance: HYDROMORPHONE HYDROCHLORIDE
     Indication: Pain prophylaxis
     Dosage: 1.3 MILLIGRAM
     Route: 048
     Dates: start: 201706, end: 20210309
  90. HYDROMORPHONE HYDROCHLORIDE [Concomitant]
     Active Substance: HYDROMORPHONE HYDROCHLORIDE
     Dosage: 2 MILLIGRAM
     Route: 048
     Dates: start: 20190816, end: 20210326
  91. HYDROMORPHONE HYDROCHLORIDE [Concomitant]
     Active Substance: HYDROMORPHONE HYDROCHLORIDE
     Dosage: UNK
     Dates: start: 20210309
  92. HYDROMORPHONE HYDROCHLORIDE [Concomitant]
     Active Substance: HYDROMORPHONE HYDROCHLORIDE
     Dosage: 2 MILLIGRAM, BID
     Route: 048
     Dates: start: 20210326, end: 20210409
  93. HYDROMORPHONE HYDROCHLORIDE [Concomitant]
     Active Substance: HYDROMORPHONE HYDROCHLORIDE
     Dosage: 4 MILLIGRAM, BID
     Route: 048
     Dates: start: 20210410
  94. GLANDOMED [Concomitant]
     Dosage: UNK, AS NECESSARY
     Route: 061
     Dates: start: 20161208, end: 20161222
  95. LIPEGFILGRASTIM [Concomitant]
     Active Substance: LIPEGFILGRASTIM
     Indication: Prophylaxis
     Dosage: 6 MILLIGRAM, Q3WK
     Route: 058
     Dates: start: 20170113, end: 20170203
  96. TAZOBACTAM [Concomitant]
     Active Substance: TAZOBACTAM
     Dosage: 4.5 GRAM, QD
     Route: 040
     Dates: start: 20161208, end: 20161212
  97. GUAR GUM [Concomitant]
     Active Substance: GUAR GUM
     Indication: Prophylaxis
     Dosage: UNK
     Route: 048
     Dates: start: 20161102, end: 2016
  98. MOVICOL [Concomitant]
     Active Substance: POLYETHYLENE GLYCOL 3350\POTASSIUM CHLORIDE\SODIUM BICARBONATE\SODIUM CHLORIDE
     Indication: Constipation prophylaxis
     Dosage: 1200 MILLIGRAM (ASNECESSARY)
     Route: 048
     Dates: end: 201706
  99. ZOFRAN [Concomitant]
     Active Substance: ONDANSETRON HYDROCHLORIDE
     Indication: Prophylaxis of nausea and vomiting
     Dosage: 8 MILLIGRAM
     Route: 048
     Dates: start: 20161123, end: 20170204
  100. PERFALGAN [Concomitant]
     Active Substance: ACETAMINOPHEN
     Dosage: 1 GRAM, QD
     Route: 040
     Dates: start: 20161208, end: 20161212
  101. METOCLOPRAMIDE [Concomitant]
     Active Substance: METOCLOPRAMIDE
     Indication: Prophylaxis of nausea and vomiting
     Dosage: 10 MILLIGRAM, Q3WK
     Route: 040
     Dates: start: 20180205
  102. PANTOPRAZOLE SODIUM [Concomitant]
     Active Substance: PANTOPRAZOLE SODIUM
     Dosage: 40 MILLIGRAM, QD
     Route: 048
     Dates: start: 20161031, end: 20161123
  103. PANTOPRAZOLE SODIUM [Concomitant]
     Active Substance: PANTOPRAZOLE SODIUM
     Dosage: 40 MILLIGRAM, BID
     Route: 048
     Dates: start: 20161018, end: 20161030
  104. PANTOPRAZOLE SODIUM [Concomitant]
     Active Substance: PANTOPRAZOLE SODIUM
     Dosage: 40 MILLIGRAM, BID
     Route: 042
     Dates: start: 20161010, end: 20161018
  105. IMODIUM [Concomitant]
     Active Substance: LOPERAMIDE HYDROCHLORIDE
     Indication: Diarrhoea
     Dosage: 2 MILLIGRAM
     Route: 048
     Dates: start: 20171106, end: 20171127
  106. IMODIUM [Concomitant]
     Active Substance: LOPERAMIDE HYDROCHLORIDE
     Dosage: UNK
  107. ALPRAZOLAM [Concomitant]
     Active Substance: ALPRAZOLAM
     Dosage: 0.5 MILLIGRAM, AS NECESSARY
     Route: 048
     Dates: start: 20161117
  108. LEVOCETIRIZINE [Concomitant]
     Active Substance: LEVOCETIRIZINE
     Dosage: UNK
     Dates: start: 20220801
  109. SERTRALINE HYDROCHLORIDE [Concomitant]
     Active Substance: SERTRALINE HYDROCHLORIDE
     Dosage: 50 MILLIGRAM
     Route: 048
     Dates: start: 201710
  110. FILGRASTIM [Concomitant]
     Active Substance: FILGRASTIM
     Dosage: 48 INTERNATIONAL UNIT, QWK
     Route: 058
     Dates: start: 20161208, end: 20161211
  111. VIMPAT [Concomitant]
     Active Substance: LACOSAMIDE
     Dosage: UNK
     Dates: start: 20230602
  112. SPIRONOLACTONE [Concomitant]
     Active Substance: SPIRONOLACTONE
     Dosage: UNK
     Dates: start: 20230811
  113. FILGRASTIM [Concomitant]
     Active Substance: FILGRASTIM
     Dosage: UNK
     Dates: start: 20230811, end: 20230924
  114. TRACEL [Concomitant]
     Dosage: UNK
  115. AMINO ACIDS\DEXTROSE\ELECTROLYTES NOS\SOYBEAN OIL [Concomitant]
     Active Substance: AMINO ACIDS\DEXTROSE\ELECTROLYTES NOS\SOYBEAN OIL
     Dosage: UNK
  116. MYSOLINE [Concomitant]
     Active Substance: PRIMIDONE
     Dosage: UNK
  117. AMOXICILLIN\CLAVULANATE POTASSIUM [Concomitant]
     Active Substance: AMOXICILLIN\CLAVULANATE POTASSIUM
     Dosage: UNK
  118. CERNEVIT [Concomitant]
     Active Substance: VITAMINS
     Dosage: UNK
  119. MAGNESIUM CARBONATE\MAGNESIUM OXIDE [Concomitant]
     Active Substance: MAGNESIUM CARBONATE\MAGNESIUM OXIDE
     Dosage: UNK
  120. IBUPROFEN [Concomitant]
     Active Substance: IBUPROFEN
     Dosage: UNK
  121. OSELTAMIVIR [Concomitant]
     Active Substance: OSELTAMIVIR
     Dosage: UNK
  122. ACETAMINOPHEN [Concomitant]
     Active Substance: ACETAMINOPHEN
     Dosage: UNK
  123. CALCIUM CARBONATE\VITAMIN D [Concomitant]
     Active Substance: CALCIUM CARBONATE\VITAMIN D
     Indication: Prophylaxis
     Dosage: 2 DOSAGE FORM, QD (1 DF TWICE DAILY)
     Route: 048
     Dates: start: 20161112
  124. CALCIUM CARBONATE\CHOLECALCIFEROL [Concomitant]
     Active Substance: CALCIUM CARBONATE\CHOLECALCIFEROL
     Dosage: UNK
     Dates: start: 20161112

REACTIONS (11)
  - Dehydration [Recovered/Resolved]
  - Nausea [Recovered/Resolved]
  - Hemianopia [Recovered/Resolved]
  - White blood cell count decreased [Recovered/Resolved]
  - White blood cell count decreased [Not Recovered/Not Resolved]
  - Nausea [Recovered/Resolved]
  - Thrombocytopenia [Recovering/Resolving]
  - Thrombocytopenia [Recovering/Resolving]
  - Skin fissures [Recovered/Resolved]
  - Abdominal pain [Recovered/Resolved]
  - Headache [Recovered/Resolved]

NARRATIVE: CASE EVENT DATE: 20180522
